FAERS Safety Report 12627727 (Version 1)
Quarter: 2016Q3

REPORT INFORMATION
  Report Type: Spontaneous
  Country: AU (occurrence: AU)
  Receive Date: 20160805
  Receipt Date: 20160805
  Transmission Date: 20161109
  Serious: Yes (Other)
  Sender: FDA-Public Use
  Company Number: AU-ASTRAZENECA-2016SE83211

PATIENT
  Age: 58 Year

DRUGS (1)
  1. OLAPARIB [Suspect]
     Active Substance: OLAPARIB
     Route: 048

REACTIONS (2)
  - Malignant neoplasm progression [Unknown]
  - Nausea [Unknown]
